FAERS Safety Report 10455231 (Version 2)
Quarter: 2014Q3

REPORT INFORMATION
  Report Type: Spontaneous
  Country: CA (occurrence: CA)
  Receive Date: 20140916
  Receipt Date: 20140923
  Transmission Date: 20150326
  Serious: Yes (Death, Other)
  Sender: FDA-Public Use
  Company Number: CA-AMGEN-CANSP2014070322

PATIENT
  Age: 68 Year
  Sex: Female

DRUGS (2)
  1. ENBREL [Suspect]
     Active Substance: ETANERCEPT
     Indication: RHEUMATOID ARTHRITIS
     Dosage: 25 MG, QWK
     Route: 058
     Dates: start: 20050413
  2. VOLTAREN [Concomitant]
     Active Substance: DICLOFENAC SODIUM
     Dosage: 50 MG, QD

REACTIONS (10)
  - Anaemia [Unknown]
  - Death [Fatal]
  - Lung adenocarcinoma [Unknown]
  - Gastrointestinal angiodysplasia [Unknown]
  - Asthenia [Unknown]
  - Carotid endarterectomy [Unknown]
  - Transient ischaemic attack [Unknown]
  - Osteoarthritis [Unknown]
  - Metastasis [Unknown]
  - Mobility decreased [Unknown]

NARRATIVE: CASE EVENT DATE: 2011
